FAERS Safety Report 11303786 (Version 2)
Quarter: 2015Q4

REPORT INFORMATION
  Report Type: Report from Study
  Country: US (occurrence: US)
  Receive Date: 20150723
  Receipt Date: 20151030
  Transmission Date: 20160304
  Serious: No
  Sender: FDA-Public Use
  Company Number: US-JNJFOC-20150711611

PATIENT

DRUGS (3)
  1. ADALIMUMAB [Concomitant]
     Active Substance: ADALIMUMAB
     Route: 065
     Dates: start: 201009
  2. USTEKINUMAB [Suspect]
     Active Substance: USTEKINUMAB
     Indication: PSORIASIS
     Route: 058
     Dates: start: 200912, end: 201006
  3. ADALIMUMAB [Concomitant]
     Active Substance: ADALIMUMAB
     Route: 065
     Dates: start: 200709, end: 200912

REACTIONS (1)
  - Cellulitis [Recovered/Resolved]
